FAERS Safety Report 5056908-X (Version None)
Quarter: 2006Q2

REPORT INFORMATION
  Report Type: 
  Country: None (occurrence: None)
  Receive Date: 20060622
  Receipt Date: 20051026
  Transmission Date: 20061013
  Serious: Yes (Other)
  Sender: FDA-Public Use
  Company Number: US-JNJFOC-20051005934

PATIENT
  Age: 53 Year
  Sex: Female
  Weight: 48.0813 kg

DRUGS (2)
  1. SANDOZ FENTANYL TRANSDERMAL SYSTEM  (FENTANYL) PATCH [Suspect]
     Indication: CANCER PAIN
     Dosage: SEE IMAGE
     Route: 062
     Dates: start: 20050101, end: 20050101
  2. SANDOZ FENTANYL TRANSDERMAL SYSTEM  (FENTANYL) PATCH [Suspect]
     Indication: CANCER PAIN
     Dosage: SEE IMAGE
     Route: 062
     Dates: start: 20050101, end: 20050101

REACTIONS (2)
  - DRUG ABUSER [None]
  - PAIN [None]
